FAERS Safety Report 21504509 (Version 1)
Quarter: 2022Q4

REPORT INFORMATION
  Report Type: Spontaneous
  Country: US (occurrence: US)
  Receive Date: 20221025
  Receipt Date: 20221025
  Transmission Date: 20230113
  Serious: No
  Sender: FDA-Public Use
  Company Number: US-MYLANLABS-2022M1115054

PATIENT
  Sex: Female

DRUGS (31)
  1. LYRICA [Suspect]
     Active Substance: PREGABALIN
     Indication: Thinking abnormal
     Dosage: UNK
     Route: 065
  2. FOSAMAX [Suspect]
     Active Substance: ALENDRONATE SODIUM
     Indication: Gastrointestinal disorder
     Dosage: UNK
     Route: 065
  3. PRIMIDONE [Suspect]
     Active Substance: PRIMIDONE
     Indication: Thinking abnormal
     Dosage: UNK
     Route: 065
  4. DARVON [Suspect]
     Active Substance: PROPOXYPHENE HYDROCHLORIDE
     Indication: Hallucination
     Dosage: UNK
     Route: 065
  5. PROPRANOLOL [Concomitant]
     Active Substance: PROPRANOLOL HYDROCHLORIDE
     Indication: Familial tremor
     Dosage: UNK UNK, BID (160 LA)
     Route: 065
  6. PROPRANOLOL [Concomitant]
     Active Substance: PROPRANOLOL HYDROCHLORIDE
     Indication: Hypertension
  7. CLONIDINE [Concomitant]
     Active Substance: CLONIDINE
     Indication: Hypertension
     Dosage: UNK UNK, AM ((ONE.01 IN MORNING)
     Route: 065
  8. CLONIDINE [Concomitant]
     Active Substance: CLONIDINE
     Dosage: UNK UNK, PM (ONE.01 IN EVENING)
     Route: 065
  9. ATORVASTATIN [Concomitant]
     Active Substance: ATORVASTATIN
     Indication: Blood cholesterol increased
     Dosage: UNK
     Route: 065
  10. LOSARTAN AND HYDROCHLOROTHIAZIDE [Concomitant]
     Active Substance: HYDROCHLOROTHIAZIDE\LOSARTAN POTASSIUM
     Indication: Hypertension
     Dosage: UNK
     Route: 065
  11. SYNTHROID [Concomitant]
     Active Substance: LEVOTHYROXINE SODIUM
     Indication: Thyroid disorder
     Dosage: UNK
     Route: 065
  12. K-DUR [Concomitant]
     Active Substance: POTASSIUM CHLORIDE
     Indication: Blood magnesium
     Dosage: UNK
     Route: 065
  13. Ponaris [Concomitant]
     Indication: Epistaxis
     Dosage: UNK UNK, BID (1 DROPPERFUL IN EACH NOSTRIL 2X A DAY)
     Route: 065
  14. VITAMIN D3 [Concomitant]
     Active Substance: CHOLECALCIFEROL
     Indication: Bone disorder
     Dosage: UNK
     Route: 065
  15. ALLEGRA [Concomitant]
     Active Substance: FEXOFENADINE HYDROCHLORIDE
     Indication: Hypersensitivity
     Dosage: UNK
     Route: 065
  16. FLONASE [Concomitant]
     Active Substance: FLUTICASONE PROPIONATE
     Dosage: UNK UNK, PRN (ONE SPRAY IN EACH NOSTRIL ONCE A DAY AS NEEDED)
     Route: 045
  17. ASTEPRO [Concomitant]
     Active Substance: AZELASTINE HYDROCHLORIDE
     Dosage: UNK UNK, BID ( (2 SPRAYS IN EACH NOSTRIL TWICE A DAY)
     Route: 045
  18. NASOGEL [Concomitant]
     Dosage: UNK UNK, BID (2 SPRAYS IN EACH NOSTRIL - 2X DAY)
     Route: 045
  19. Mucinex expectorant [Concomitant]
     Dosage: UNK UNK, PRN (AS NEEDED)
     Route: 065
  20. NEILMED SINUS RINSE [Concomitant]
     Active Substance: SODIUM BICARBONATE\SODIUM CHLORIDE
     Dosage: UNK UNK, PRN (AS NEEDED)
     Route: 045
  21. HYDROCORTISONE [Concomitant]
     Active Substance: HYDROCORTISONE
     Indication: Hypersensitivity
     Dosage: UNK UNK, PRN (AS NEEDED)
     Route: 065
  22. ROGAINE [Concomitant]
     Active Substance: MINOXIDIL
     Indication: Alopecia
     Dosage: UNK
     Route: 065
  23. FLUOCINONIDE [Concomitant]
     Active Substance: FLUOCINONIDE
     Indication: Alopecia
     Dosage: UNK
     Route: 065
  24. ERYTHROMYCIN [Concomitant]
     Active Substance: ERYTHROMYCIN
     Dosage: UNK (BOTH EYELIDS)
     Route: 065
  25. LOTEMAX [Concomitant]
     Active Substance: LOTEPREDNOL ETABONATE
     Indication: Corneal transplant
     Dosage: UNK UNK, QD (ONE DROP BOTH EYES - ONCE A DAY)
     Route: 065
  26. OCUVITE [Concomitant]
     Active Substance: VITAMINS
     Indication: Eye disorder
     Dosage: UNK
     Route: 065
  27. OMEPRAZOLE [Concomitant]
     Active Substance: OMEPRAZOLE
     Indication: Gastrooesophageal reflux disease
     Dosage: UNK UNK, PRN (1 A DAY , 2 IF NEEDED)
     Route: 065
  28. COVID-19 vaccine [Concomitant]
     Indication: Product used for unknown indication
     Dosage: UNK UNK, AM
     Route: 030
     Dates: start: 20210310
  29. COVID-19 vaccine [Concomitant]
     Dosage: UNK UNK, AM
     Route: 030
     Dates: start: 20210331
  30. COVID-19 vaccine [Concomitant]
     Dosage: UNK UNK, AM
     Route: 030
     Dates: start: 20210827
  31. COVID-19 vaccine [Concomitant]
     Dosage: UNK UNK, AM
     Route: 030
     Dates: start: 20220507

REACTIONS (1)
  - Hypersensitivity [Unknown]
